FAERS Safety Report 19246753 (Version 1)
Quarter: 2021Q2

REPORT INFORMATION
  Report Type: Report from Study
  Country: US (occurrence: US)
  Receive Date: 20210512
  Receipt Date: 20210512
  Transmission Date: 20210717
  Serious: Yes (Other)
  Sender: FDA-Public Use
  Company Number: US-TAKEDA-US202018638

PATIENT
  Sex: Female

DRUGS (1)
  1. HUMAN NORMAL IMMUNOGLOBULIN; LIQUID [Suspect]
     Active Substance: HUMAN IMMUNOGLOBULIN G
     Indication: PRIMARY IMMUNODEFICIENCY SYNDROME
     Dosage: 35 GRAM, MONTHLY
     Route: 042

REACTIONS (17)
  - Blood pressure increased [Unknown]
  - Blood parathyroid hormone increased [Unknown]
  - Tooth infection [Unknown]
  - Blood calcium increased [Unknown]
  - Migraine [Unknown]
  - Sinusitis [Unknown]
  - Hair growth abnormal [Unknown]
  - Throat irritation [Unknown]
  - Oropharyngeal pain [Unknown]
  - Dry throat [Unknown]
  - Pyrexia [Unknown]
  - Infection [Unknown]
  - Headache [Unknown]
  - Vomiting [Unknown]
  - Obstruction [Unknown]
  - Nausea [Unknown]
  - Atypical pneumonia [Unknown]

NARRATIVE: CASE EVENT DATE: 2019
